FAERS Safety Report 4443383-9 (Version None)
Quarter: 2004Q3

REPORT INFORMATION
  Report Type: 
  Country: None (occurrence: None)
  Receive Date: 20040908
  Receipt Date: 20040827
  Transmission Date: 20050211
  Serious: Yes (Death)
  Sender: FDA-Public Use
  Company Number: PHNU2004DE03039

PATIENT
  Sex: Male

DRUGS (2)
  1. DICLOFENAC [Suspect]
     Dosage: 1 DF, ONCE/SINGLE
     Route: 030
     Dates: start: 20040312, end: 20040312
  2. DEXAMETASON [Suspect]
     Dosage: 1 DF, ONCE/SINGLE
     Dates: start: 20040312, end: 20040312

REACTIONS (2)
  - NECROTISING FASCIITIS [None]
  - STREPTOCOCCAL SEPSIS [None]
